FAERS Safety Report 5951229-2 (Version None)
Quarter: 2008Q4

REPORT INFORMATION
  Report Type: 
  Country: None (occurrence: None)
  Receive Date: 20081112
  Receipt Date: 20081112
  Transmission Date: 20090506
  Serious: Yes (Death)
  Sender: FDA-Public Use
  Company Number: None

PATIENT
  Sex: Male
  Weight: 84.8226 kg

DRUGS (2)
  1. SORAFENIB [Suspect]
     Dosage: 400MG/ DAY
     Dates: start: 20080427, end: 20080711
  2. TEMOZOLOMIDE [Suspect]
     Dosage: 150MG/ DAY
     Dates: start: 20080427, end: 20080610

REACTIONS (1)
  - DISEASE PROGRESSION [None]
